FAERS Safety Report 8691264 (Version 3)
Quarter: 2012Q4

REPORT INFORMATION
  Report Type: Report from Study
  Country: US (occurrence: US)
  Receive Date: 20120730
  Receipt Date: 20121031
  Transmission Date: 20130627
  Serious: Yes (Hospitalization, Other)
  Sender: FDA-Public Use
  Company Number: US-US-EMD SERONO, INC.-7149302

PATIENT
  Sex: Female

DRUGS (5)
  1. REBIF [Suspect]
     Indication: PRODUCT USED FOR UNKNOWN INDICATION
     Route: 058
     Dates: start: 2002, end: 2012
  2. REBIF [Suspect]
     Route: 058
     Dates: start: 20110712, end: 201208
  3. DILAUDID [Concomitant]
     Indication: PRODUCT USED FOR UNKNOWN INDICATION
  4. PERCOCET [Concomitant]
     Indication: PRODUCT USED FOR UNKNOWN INDICATION
  5. ASPIRIN [Concomitant]
     Indication: PROPHYLAXIS

REACTIONS (5)
  - Blood pressure increased [Recovered/Resolved]
  - Headache [Recovered/Resolved]
  - Visual impairment [Unknown]
  - Neck injury [Unknown]
  - Chronic obstructive pulmonary disease [Unknown]
